FAERS Safety Report 10461866 (Version 5)
Quarter: 2015Q2

REPORT INFORMATION
  Report Type: Spontaneous
  Country: US (occurrence: US)
  Receive Date: 20140918
  Receipt Date: 20150610
  Transmission Date: 20150821
  Serious: No
  Sender: FDA-Public Use
  Company Number: US-009507513-1409USA005319

PATIENT
  Age: 33 Year
  Sex: Female
  Weight: 120.64 kg

DRUGS (1)
  1. IMPLANON [Suspect]
     Active Substance: ETONOGESTREL
     Dosage: UNK
     Route: 059
     Dates: start: 20120430, end: 20140909

REACTIONS (5)
  - Device difficult to use [Not Recovered/Not Resolved]
  - Device breakage [Unknown]
  - Medical device complication [Unknown]
  - Incorrect drug administration duration [Unknown]
  - No adverse event [Unknown]

NARRATIVE: CASE EVENT DATE: 20140909
